FAERS Safety Report 14317861 (Version 5)
Quarter: 2018Q3

REPORT INFORMATION
  Report Type: Spontaneous
  Country: GB (occurrence: GB)
  Receive Date: 20171222
  Receipt Date: 20180809
  Transmission Date: 20181010
  Serious: Yes (Death, Other)
  Sender: FDA-Public Use
  Company Number: GB-TEVA-2017-GB-835550

PATIENT
  Age: 69 Year
  Sex: Male

DRUGS (1)
  1. METHOTREXATE. [Suspect]
     Active Substance: METHOTREXATE
     Indication: PSORIASIS
     Route: 048
     Dates: start: 200411, end: 201504

REACTIONS (4)
  - Death [Fatal]
  - Nodular regenerative hyperplasia [Fatal]
  - Portal hypertension [Fatal]
  - Hepatic failure [Fatal]

NARRATIVE: CASE EVENT DATE: 201504
